FAERS Safety Report 18970254 (Version 2)
Quarter: 2021Q4

REPORT INFORMATION
  Report Type: Report from Study
  Country: CA (occurrence: CA)
  Receive Date: 20210304
  Receipt Date: 20211006
  Transmission Date: 20220303
  Serious: Yes (Other)
  Sender: FDA-Public Use
  Company Number: CA-PFIZER INC-2021222850

PATIENT
  Age: 68 Year
  Sex: Female

DRUGS (21)
  1. RITUXIMAB [Suspect]
     Active Substance: RITUXIMAB
     Indication: Rheumatoid arthritis
     Dosage: 1000 MG
     Route: 042
  2. AMLODIPINE [Concomitant]
     Active Substance: AMLODIPINE BESYLATE
  3. ARAVA [Concomitant]
     Active Substance: LEFLUNOMIDE
  4. BENADRYL [Concomitant]
     Active Substance: DIPHENHYDRAMINE HYDROCHLORIDE
     Indication: Premedication
     Dosage: 50 MG
     Route: 048
  5. CANDESARTAN [Concomitant]
     Active Substance: CANDESARTAN
  6. ENBREL [Concomitant]
     Active Substance: ETANERCEPT
  7. HYDROXYCHLOROQUINE SULFATE [Concomitant]
     Active Substance: HYDROXYCHLOROQUINE SULFATE
  8. LEFLUNOMIDE [Concomitant]
     Active Substance: LEFLUNOMIDE
  9. LORAZEPAM [Concomitant]
     Active Substance: LORAZEPAM
  10. METHYLCOBALAMIN [Concomitant]
     Active Substance: METHYLCOBALAMIN
  11. METHYLPREDNISOLONE SODIUM SUCCINATE [Concomitant]
     Active Substance: METHYLPREDNISOLONE SODIUM SUCCINATE
     Indication: Premedication
     Dosage: 100 MG
     Route: 042
  12. NAPROXEN [Concomitant]
     Active Substance: NAPROXEN
  13. NORVASK [AMLODIPINE BESILATE] [Concomitant]
  14. PANTOPRAZOLE MAGNESIUM [Concomitant]
     Active Substance: PANTOPRAZOLE MAGNESIUM
  15. PREDNISONE [Concomitant]
     Active Substance: PREDNISONE
  16. TYLENOL [Concomitant]
     Active Substance: ACETAMINOPHEN
     Dosage: 650 MG
     Route: 048
  17. ACETAMINOPHEN [Concomitant]
     Active Substance: ACETAMINOPHEN
     Indication: Premedication
     Dosage: 650 MG
     Route: 048
  18. AMLODIPINE [Concomitant]
     Active Substance: AMLODIPINE BESYLATE
     Route: 065
  19. AMLODIPINE BESYLATE [Concomitant]
     Active Substance: AMLODIPINE BESYLATE
  20. ARAVA [Concomitant]
     Active Substance: LEFLUNOMIDE
  21. PLAQUENIL [Concomitant]
     Active Substance: HYDROXYCHLOROQUINE SULFATE
     Route: 065

REACTIONS (8)
  - Blood pressure fluctuation [Recovered/Resolved]
  - Blood pressure systolic abnormal [Recovered/Resolved]
  - Eye infection [Recovered/Resolved]
  - Heart rate increased [Recovered/Resolved]
  - Urinary tract infection [Recovered/Resolved]
  - Uveitis [Recovered/Resolved]
  - Anxiety [Recovered/Resolved]
  - Blood pressure systolic increased [Recovered/Resolved]
